FAERS Safety Report 10471011 (Version 1)
Quarter: 2014Q3

REPORT INFORMATION
  Report Type: Spontaneous
  Country: US (occurrence: None)
  Receive Date: 20140917
  Receipt Date: 20140917
  Transmission Date: 20150326
  Serious: No
  Sender: FDA-Public Use
  Company Number: 2014CT000111

PATIENT
  Age: 43 Year
  Sex: Female
  Weight: 102.97 kg

DRUGS (19)
  1. NORCO [Concomitant]
     Active Substance: ACETAMINOPHEN\HYDROCODONE BITARTRATE
  2. FLEXERIL [Concomitant]
     Active Substance: CYCLOBENZAPRINE HYDROCHLORIDE
  3. CYMBALTA [Concomitant]
     Active Substance: DULOXETINE HYDROCHLORIDE
  4. METFORMIN [Concomitant]
     Active Substance: METFORMIN HYDROCHLORIDE
  5. LIPITOR [Concomitant]
     Active Substance: ATORVASTATIN CALCIUM
  6. MORPHINE [Concomitant]
     Active Substance: MORPHINE
  7. KORLYM [Suspect]
     Active Substance: MIFEPRISTONE
     Indication: PITUITARY-DEPENDENT CUSHING^S SYNDROME
     Route: 048
     Dates: start: 20140728, end: 20140805
  8. NEXIUM [Concomitant]
     Active Substance: ESOMEPRAZOLE MAGNESIUM
  9. WATER PILL [Concomitant]
     Active Substance: UNSPECIFIED INGREDIENT
  10. NOVOLOG [Concomitant]
     Active Substance: INSULIN ASPART
  11. CLONOPIN [Concomitant]
     Active Substance: CLONAZEPAM
  12. SEROQUEL [Concomitant]
     Active Substance: QUETIAPINE FUMARATE
  13. VITAMIN B12 [Concomitant]
     Active Substance: CYANOCOBALAMIN
  14. TRAZODONE [Concomitant]
     Active Substance: TRAZODONE HYDROCHLORIDE
  15. ASA [Concomitant]
     Active Substance: ASPIRIN
  16. LANTUS [Concomitant]
     Active Substance: INSULIN GLARGINE
  17. HCTZ [Concomitant]
     Active Substance: HYDROCHLOROTHIAZIDE
  18. LISINOPRIL. [Concomitant]
     Active Substance: LISINOPRIL
  19. GABAPENTIN. [Concomitant]
     Active Substance: GABAPENTIN

REACTIONS (5)
  - Blood glucose increased [None]
  - Fall [None]
  - Blood pressure decreased [None]
  - Oedema [None]
  - Dysuria [None]

NARRATIVE: CASE EVENT DATE: 20140730
